FAERS Safety Report 5345763-6 (Version None)
Quarter: 2007Q2

REPORT INFORMATION
  Report Type: 
  Country: None (occurrence: None)
  Receive Date: 20070601
  Receipt Date: 20070517
  Transmission Date: 20071010
  Serious: Yes (Other)
  Sender: FDA-Public Use
  Company Number: 2007000908

PATIENT
  Age: 47 Year
  Sex: Male

DRUGS (3)
  1. TARCEVA [Suspect]
     Indication: NEOPLASM MALIGNANT
     Dosage: 250 MG/150 MG QD, ORAL
     Route: 048
     Dates: start: 20061115
  2. GABAPENTIN [Concomitant]
  3. CLONAZEPAM [Concomitant]

REACTIONS (6)
  - ACNE [None]
  - ASCITES [None]
  - DIARRHOEA [None]
  - FATIGUE [None]
  - LUNG INFILTRATION [None]
  - PLEURAL EFFUSION [None]
